FAERS Safety Report 20564917 (Version 6)
Quarter: 2024Q1

REPORT INFORMATION
  Report Type: Spontaneous
  Country: US (occurrence: US)
  Receive Date: 20220308
  Receipt Date: 20240308
  Transmission Date: 20240409
  Serious: Yes (Hospitalization, Disabling, Other)
  Sender: FDA-Public Use
  Company Number: US-ORGANON-O2203USA000481

PATIENT
  Sex: Female
  Weight: 30.93 kg

DRUGS (2)
  1. SINGULAIR [Suspect]
     Active Substance: MONTELUKAST SODIUM
     Indication: Asthma
     Dosage: 5 MILLIGRAM
     Route: 048
     Dates: start: 2001, end: 2011
  2. SINGULAIR [Suspect]
     Active Substance: MONTELUKAST SODIUM
     Indication: Hypersensitivity

REACTIONS (34)
  - Eating disorder [Recovered/Resolved]
  - Adjustment disorder with mixed disturbance of emotion and conduct [Recovered/Resolved]
  - Anxiety disorder [Not Recovered/Not Resolved]
  - Neuropsychological symptoms [Not Recovered/Not Resolved]
  - Abortion [Unknown]
  - Abortion [Unknown]
  - Suicidal ideation [Unknown]
  - Anorexia nervosa [Not Recovered/Not Resolved]
  - Body dysmorphic disorder [Unknown]
  - Obsessive-compulsive disorder [Unknown]
  - Adjustment disorder [Unknown]
  - Social anxiety disorder [Unknown]
  - Persistent depressive disorder [Unknown]
  - Malnutrition [Unknown]
  - Binge eating [Unknown]
  - Depression [Unknown]
  - Depressed mood [Unknown]
  - Post-traumatic stress disorder [Unknown]
  - Nightmare [Unknown]
  - Social avoidant behaviour [Unknown]
  - Nervousness [Unknown]
  - Self-consciousness [Unknown]
  - Somnambulism [Unknown]
  - Irritability [Unknown]
  - Disturbance in attention [Unknown]
  - Akathisia [Unknown]
  - Confusional state [Unknown]
  - Daydreaming [Unknown]
  - Impulse-control disorder [Unknown]
  - Clumsiness [Unknown]
  - Weight increased [Unknown]
  - Diarrhoea [Unknown]
  - Pain [Unknown]
  - Skin disorder [Unknown]

NARRATIVE: CASE EVENT DATE: 20010101
